FAERS Safety Report 4764927-3 (Version None)
Quarter: 2005Q3

REPORT INFORMATION
  Report Type: 
  Country: None (occurrence: None)
  Receive Date: 20050909
  Receipt Date: 20050706
  Transmission Date: 20060218
  Serious: Yes (Other)
  Sender: FDA-Public Use
  Company Number: US-ROCHE-410046

PATIENT
  Age: 58 Year
  Sex: Female
  Weight: 130.6 kg

DRUGS (6)
  1. PEGASYS [Suspect]
     Indication: HEPATITIS C
     Route: 058
     Dates: start: 20041115, end: 20050407
  2. COPEGUS [Suspect]
     Indication: HEPATITIS C
     Route: 048
     Dates: start: 20041115, end: 20050407
  3. LEVOXYL [Concomitant]
     Indication: HYPOTHYROIDISM
     Dosage: FREQUENCY PROVIDED AS EVERY DAY.
     Route: 048
  4. CELEBREX [Concomitant]
     Indication: ARTHRITIS
     Dosage: FREQUENCY REPORTED AS EVERY DAY.
     Route: 048
  5. AMILORIDE HCL [Concomitant]
  6. AVALIDE [Concomitant]
     Indication: HYPERTENSION
     Dosage: FREQUENCY REPORTED AS EVERY DAY.
     Route: 048

REACTIONS (6)
  - CATARACT [None]
  - EYE DISCHARGE [None]
  - RETINAL EXUDATES [None]
  - RETINOPATHY [None]
  - VISUAL ACUITY REDUCED [None]
  - VISUAL DISTURBANCE [None]
